FAERS Safety Report 23230618 (Version 1)
Quarter: 2023Q4

REPORT INFORMATION
  Report Type: Spontaneous
  Country: CN (occurrence: CN)
  Receive Date: 20231127
  Receipt Date: 20231127
  Transmission Date: 20240109
  Serious: Yes (Other)
  Sender: FDA-Public Use
  Company Number: None

PATIENT
  Age: 72 Year
  Sex: Female

DRUGS (4)
  1. CAPECITABINE [Suspect]
     Active Substance: CAPECITABINE
     Indication: Invasive ductal breast carcinoma
     Dosage: TWICE DAILY FOR 2 WEEKS AT 3-WEEK INTERVALS?DAILY DOSE: 3000 MILLIGRAM
     Route: 048
  2. PACLITAXEL [Suspect]
     Active Substance: PACLITAXEL
     Indication: Invasive ductal breast carcinoma
     Dosage: EVERY 3 WEEKS
     Route: 042
  3. LOVASTATIN [Concomitant]
     Active Substance: LOVASTATIN
  4. ASPIRIN [Concomitant]
     Active Substance: ASPIRIN

REACTIONS (6)
  - Palmar-plantar erythrodysaesthesia syndrome [Unknown]
  - Nail toxicity [Recovering/Resolving]
  - Dysaesthesia [Not Recovered/Not Resolved]
  - Hyperkeratosis [Unknown]
  - Onycholysis [Not Recovered/Not Resolved]
  - Onychomadesis [Not Recovered/Not Resolved]
